FAERS Safety Report 7565158-4 (Version None)
Quarter: 2011Q2

REPORT INFORMATION
  Report Type: 
  Country: None (occurrence: None)
  Receive Date: 20110622
  Receipt Date: 20110601
  Transmission Date: 20111010
  Serious: Yes (Other)
  Sender: FDA-Public Use
  Company Number: PHHY2010CA27009

PATIENT
  Sex: Female

DRUGS (9)
  1. COUMADIN [Concomitant]
     Dates: start: 20110419
  2. CALCIUM CARBONATE [Concomitant]
  3. HYDROCHLOROTHIAZIDE [Concomitant]
  4. VITAMIN D [Concomitant]
  5. PRADEX [Concomitant]
  6. ACEBUTOLOL [Concomitant]
  7. RAMIPRIL [Concomitant]
  8. ZOLEDRONIC ACID [Suspect]
     Indication: OSTEOPOROSIS
     Dosage: 5 MG
     Route: 042
     Dates: start: 20100326
  9. SYNTHROID [Concomitant]

REACTIONS (6)
  - GENERAL PHYSICAL HEALTH DETERIORATION [None]
  - INFLUENZA [None]
  - BONE PAIN [None]
  - ARRHYTHMIA [None]
  - HYPOTENSION [None]
  - FALL [None]
